FAERS Safety Report 5741234-3 (Version None)
Quarter: 2008Q2

REPORT INFORMATION
  Report Type: 
  Country: None (occurrence: None)
  Receive Date: 20080516
  Receipt Date: 20080510
  Transmission Date: 20081010
  Serious: Yes (Other)
  Sender: FDA-Public Use
  Company Number: US-PFIZER INC-2008040845

PATIENT
  Sex: Female
  Weight: 50 kg

DRUGS (4)
  1. CHANTIX [Suspect]
     Indication: SMOKING CESSATION THERAPY
     Dosage: FREQ:EVERY DAY
  2. DEPAKOTE [Concomitant]
  3. NEURONTIN [Concomitant]
  4. LEXAPRO [Concomitant]

REACTIONS (2)
  - CONVULSION [None]
  - PNEUMONIA [None]
